FAERS Safety Report 4993545-7 (Version None)
Quarter: 2006Q2

REPORT INFORMATION
  Report Type: 
  Country: None (occurrence: None)
  Receive Date: 20060504
  Receipt Date: 20060504
  Transmission Date: 20061013
  Serious: Yes (Other)
  Sender: FDA-Public Use
  Company Number: None

PATIENT
  Sex: Female

DRUGS (1)
  1. ALTACE [Suspect]
     Indication: HYPERTENSION
     Dosage: 1-5 MG PER DAY
     Dates: start: 20030101, end: 20060101

REACTIONS (9)
  - ARTHRALGIA [None]
  - BACK PAIN [None]
  - COUGH [None]
  - FAECAL INCONTINENCE [None]
  - JOINT STIFFNESS [None]
  - LOCAL SWELLING [None]
  - MUSCLE SPASMS [None]
  - MUSCULOSKELETAL STIFFNESS [None]
  - URINARY INCONTINENCE [None]
